FAERS Safety Report 11751241 (Version 1)
Quarter: 2015Q4

REPORT INFORMATION
  Report Type: Spontaneous
  Country: CN (occurrence: CN)
  Receive Date: 20151118
  Receipt Date: 20151118
  Transmission Date: 20160304
  Serious: Yes (Other)
  Sender: FDA-Public Use
  Company Number: CN-JNJFOC-20151022841

PATIENT

DRUGS (2)
  1. INFLIXIMAB, RECOMBINANT [Suspect]
     Active Substance: INFLIXIMAB
     Indication: CROHN^S DISEASE
     Dosage: ADMINISTERED AT THE INTERVAL OF 0,2,6, AND 8 WEEKS
     Route: 042
     Dates: start: 201106, end: 201412
  2. DEXAMETHASONE. [Concomitant]
     Active Substance: DEXAMETHASONE
     Indication: PREMEDICATION
     Route: 042

REACTIONS (2)
  - Drug ineffective [Unknown]
  - Respiratory tract infection [Recovered/Resolved]
